FAERS Safety Report 6900594-8 (Version None)
Quarter: 2010Q3

REPORT INFORMATION
  Report Type: 
  Country: None (occurrence: None)
  Receive Date: 20100730
  Receipt Date: 20100716
  Transmission Date: 20110219
  Serious: Yes (Disabling, Other)
  Sender: FDA-Public Use
  Company Number: AUR-APL-2010-01806

PATIENT
  Age: 7 Decade
  Sex: Male
  Weight: 69.9 kg

DRUGS (14)
  1. SIMVASTATIN [Suspect]
     Indication: BLOOD CHOLESTEROL INCREASED
     Dosage: 40MG, DAILY, ORAL
     Route: 048
     Dates: start: 20080101, end: 20100629
  2. AMLODIPINE [Concomitant]
  3. BUPRENORPHINE [Concomitant]
  4. FLUTICASONE PROPIONATE [Concomitant]
  5. INDORAMIN [Concomitant]
  6. LANSOPRAZOLE [Concomitant]
  7. METOCLOPRAMIDE [Concomitant]
  8. MIRTAZAPINE [Concomitant]
  9. TPN [Concomitant]
  10. ACETAMINOPHEN [Concomitant]
  11. ALBUTEROL SULFATE AUTOHALER [Concomitant]
  12. SALMETEROL/FLUTICASONE [Concomitant]
  13. TEGRETOL [Concomitant]
  14. URSODIOL [Concomitant]

REACTIONS (2)
  - ASTHENIA [None]
  - MUSCLE ATROPHY [None]
